FAERS Safety Report 11435979 (Version 1)
Quarter: 2015Q3

REPORT INFORMATION
  Report Type: Spontaneous
  Country: US (occurrence: US)
  Receive Date: 20150821
  Receipt Date: 20150821
  Transmission Date: 20151125
  Serious: No
  Sender: FDA-Public Use
  Company Number: US-ELI_LILLY_AND_COMPANY-US201402003891

PATIENT
  Sex: Male

DRUGS (3)
  1. CIALIS [Interacting]
     Active Substance: TADALAFIL
     Indication: INSULIN RESISTANCE
  2. BYETTA [Interacting]
     Active Substance: EXENATIDE
     Indication: PRODUCT USED FOR UNKNOWN INDICATION
     Dosage: 1 DF, UNKNOWN
     Route: 065
  3. CIALIS [Suspect]
     Active Substance: TADALAFIL
     Indication: WEIGHT DECREASED
     Dosage: 5 MG, QD
     Route: 065

REACTIONS (3)
  - Drug interaction [Unknown]
  - Off label use [Unknown]
  - Weight decreased [Unknown]
